FAERS Safety Report 11287479 (Version 1)
Quarter: 2015Q3

REPORT INFORMATION
  Report Type: Spontaneous
  Country: US (occurrence: None)
  Receive Date: 20150720
  Receipt Date: 20150720
  Transmission Date: 20151125
  Serious: Yes (Life-Threatening, Hospitalization, Disabling)
  Sender: FDA-Public Use
  Company Number: None

PATIENT
  Age: 50 Year
  Sex: Female
  Weight: 99.79 kg

DRUGS (7)
  1. FARXIGA [Suspect]
     Active Substance: DAPAGLIFLOZIN PROPANEDIOL
     Indication: TYPE 2 DIABETES MELLITUS
     Dates: start: 20140701, end: 20150616
  2. FLUOXETINE [Concomitant]
     Active Substance: FLUOXETINE\FLUOXETINE HYDROCHLORIDE
  3. VICTOZIA [Concomitant]
  4. LISINOPRIL. [Concomitant]
     Active Substance: LISINOPRIL
  5. GLIPIZIDE. [Concomitant]
     Active Substance: GLIPIZIDE
  6. BIOTIN [Concomitant]
     Active Substance: BIOTIN
  7. DAILY VITAMIN [Concomitant]
     Active Substance: VITAMINS

REACTIONS (8)
  - Acidosis [None]
  - General physical condition abnormal [None]
  - Fungal infection [None]
  - Hypotension [None]
  - Urinary tract infection [None]
  - Malaise [None]
  - Emotional disorder [None]
  - Sepsis [None]

NARRATIVE: CASE EVENT DATE: 20150616
